FAERS Safety Report 8588517-X (Version None)
Quarter: 2012Q3

REPORT INFORMATION
  Report Type: 
  Country: None (occurrence: None)
  Receive Date: 20120813
  Receipt Date: 20120806
  Transmission Date: 20120928
  Serious: Yes (Hospitalization)
  Sender: FDA-Public Use
  Company Number: US-JNJFOC-20120803966

PATIENT
  Age: 3 Year
  Sex: Male
  Weight: 12.7 kg

DRUGS (1)
  1. BENADRYL [Suspect]
     Indication: ACCIDENTAL EXPOSURE
     Dosage: HALF OF THE BOTTLE ONCE AT 8 PM
     Route: 048
     Dates: start: 20120802, end: 20120802

REACTIONS (3)
  - FAILURE OF CHILD RESISTANT MECHANISM FOR PHARMACEUTICAL PRODUCT [None]
  - HOSPITALISATION [None]
  - ACCIDENTAL DRUG INTAKE BY CHILD [None]
